FAERS Safety Report 10670451 (Version 2)
Quarter: 2015Q1

REPORT INFORMATION
  Report Type: Spontaneous
  Country: DE (occurrence: None)
  Receive Date: 20141218
  Receipt Date: 20150129
  Transmission Date: 20150720
  Serious: No
  Sender: FDA-Public Use
  Company Number: DE-LHC-2014112

PATIENT
  Age: 82 Year
  Sex: Male

DRUGS (2)
  1. CONOXIA (OXYGEN) (GAS FOR INHALATION) (VERUM) [Suspect]
     Active Substance: OXYGEN
     Indication: CHRONIC OBSTRUCTIVE PULMONARY DISEASE
     Dosage: 4 L/MIN AT REST AND STRESS }4 HOURS DAILY, 2 L/MIN AT NIGHT, INHALATION
     Route: 055
     Dates: start: 20120410
  2. CONOXIA (OXYGEN) (GAS FOR INHALATION) (VERUM) [Suspect]
     Active Substance: OXYGEN
     Indication: PULMONARY FIBROSIS
     Dosage: 4 L/MIN AT REST AND STRESS }4 HOURS DAILY, 2 L/MIN AT NIGHT, INHALATION
     Route: 055
     Dates: start: 20120410

REACTIONS (1)
  - Headache [None]
